FAERS Safety Report 15097646 (Version 3)
Quarter: 2018Q4

REPORT INFORMATION
  Report Type: Spontaneous
  Country: FR (occurrence: FR)
  Receive Date: 20180702
  Receipt Date: 20181003
  Transmission Date: 20190204
  Serious: Yes (Other)
  Sender: FDA-Public Use
  Company Number: FR-MYLANLABS-2018M1047136

PATIENT
  Age: 43 Year
  Sex: Female

DRUGS (2)
  1. ZOLEDRONIC ACID [Suspect]
     Active Substance: ZOLEDRONIC ACID
     Indication: SKELETAL DYSPLASIA
     Dosage: 5 MG, SINGLE
  2. ZOLEDRONIC ACID [Suspect]
     Active Substance: ZOLEDRONIC ACID
     Indication: SKELETAL DYSPLASIA
     Dosage: 5 MG, UNK
     Route: 042

REACTIONS (2)
  - Condition aggravated [Unknown]
  - Drug ineffective [Not Recovered/Not Resolved]
